FAERS Safety Report 11897085 (Version 1)
Quarter: 2016Q1

REPORT INFORMATION
  Report Type: Spontaneous
  Country: BR (occurrence: BR)
  Receive Date: 20160107
  Receipt Date: 20160107
  Transmission Date: 20160526
  Serious: Yes (Hospitalization)
  Sender: FDA-Public Use
  Company Number: BR-AMGEN-BRASP2015087450

PATIENT
  Age: 15 Year
  Sex: Female
  Weight: 53.97 kg

DRUGS (6)
  1. PREDNISONE. [Concomitant]
     Active Substance: PREDNISONE
     Indication: EYE INFECTION
     Dosage: UNK
  2. ENBREL [Suspect]
     Active Substance: ETANERCEPT
     Dosage: UNK
     Route: 065
  3. ENBREL [Suspect]
     Active Substance: ETANERCEPT
     Indication: JUVENILE IDIOPATHIC ARTHRITIS
     Dosage: 50 MG, QWK
     Route: 058
     Dates: start: 20150817
  4. PREDNISONE. [Concomitant]
     Active Substance: PREDNISONE
     Dosage: UNK
  5. MAXIDEX [Concomitant]
     Active Substance: DEXAMETHASONE
     Indication: EYE INFECTION
     Dosage: UNK
  6. MYDRIACYL [Concomitant]
     Active Substance: TROPICAMIDE
     Indication: EYE INFECTION
     Dosage: UNK
     Dates: start: 20150810

REACTIONS (6)
  - Dizziness [Recovered/Resolved]
  - Injection site pain [Not Recovered/Not Resolved]
  - Injection site mass [Not Recovered/Not Resolved]
  - Injection site haemorrhage [Unknown]
  - Retching [Unknown]
  - Malaise [Unknown]

NARRATIVE: CASE EVENT DATE: 2015
